FAERS Safety Report 12611111 (Version 1)
Quarter: 2016Q3

REPORT INFORMATION
  Report Type: Spontaneous
  Country: US (occurrence: US)
  Receive Date: 20160801
  Receipt Date: 20160801
  Transmission Date: 20161109
  Serious: No
  Sender: FDA-Public Use
  Company Number: US-FERRINGPH-2015FE02736

PATIENT
  Age: 37 Year
  Sex: Female
  Weight: 47.62 kg

DRUGS (1)
  1. ENDOMETRIN [Suspect]
     Active Substance: PROGESTERONE
     Indication: ASSISTED FERTILISATION
     Dosage: 100 MG, UNK
     Route: 067
     Dates: start: 201502

REACTIONS (4)
  - Haemorrhage [Recovered/Resolved]
  - Expired product administered [Recovered/Resolved]
  - Nausea [Recovered/Resolved]
  - Headache [Recovered/Resolved]

NARRATIVE: CASE EVENT DATE: 20150718
